FAERS Safety Report 10745340 (Version 1)
Quarter: 2015Q1

REPORT INFORMATION
  Report Type: Spontaneous
  Country: US (occurrence: US)
  Receive Date: 20150128
  Receipt Date: 20150128
  Transmission Date: 20150721
  Serious: No
  Sender: FDA-Public Use
  Company Number: US-009507513-1501USA006301

PATIENT
  Age: 36 Year
  Sex: Female

DRUGS (3)
  1. NIFEDIPINE. [Suspect]
     Active Substance: NIFEDIPINE
     Dosage: UNK
  2. PENICILLIN G [Suspect]
     Active Substance: PENICILLIN G
     Dosage: UNK
  3. CELESTONE [Suspect]
     Active Substance: BETAMETHASONE
     Dosage: UNK

REACTIONS (1)
  - Exposure during pregnancy [Recovered/Resolved]
